FAERS Safety Report 18197934 (Version 1)
Quarter: 2020Q3

REPORT INFORMATION
  Report Type: Spontaneous
  Country: CZ (occurrence: CZ)
  Receive Date: 20200826
  Receipt Date: 20200826
  Transmission Date: 20201103
  Serious: Yes (Life-Threatening, Hospitalization, Other)
  Sender: FDA-Public Use
  Company Number: CZ-AMGEN-CZESP2020134899

PATIENT
  Age: 56 Year
  Sex: Male

DRUGS (6)
  1. VENETOCLAX. [Concomitant]
     Active Substance: VENETOCLAX
     Dosage: 400 MILLIGRAM, QD
     Dates: start: 201606
  2. IDELALISIB [Concomitant]
     Active Substance: IDELALISIB
     Dosage: UNK
     Dates: start: 201510
  3. VENETOCLAX. [Concomitant]
     Active Substance: VENETOCLAX
     Dosage: 300 MILLIGRAM, QD
  4. RITUXIMAB. [Concomitant]
     Active Substance: RITUXIMAB
     Dosage: 375 MILLIGRAM/SQ. METER, QMO
     Dates: start: 201010
  5. PEGFILGRASTIM [Suspect]
     Active Substance: PEGFILGRASTIM
     Indication: PROPHYLAXIS
     Dosage: UNK
     Route: 065
  6. CYCLOPHOSPHAMIDE. [Concomitant]
     Active Substance: CYCLOPHOSPHAMIDE
     Dosage: 700 MILLIGRAM/SQ. METER, QMO
     Dates: start: 201010

REACTIONS (4)
  - Cellulitis [Unknown]
  - Neutropenia [Unknown]
  - Disease progression [Unknown]
  - Therapy partial responder [Unknown]
